FAERS Safety Report 9239125 (Version 1)
Quarter: 2013Q2

REPORT INFORMATION
  Report Type: Spontaneous
  Country: US (occurrence: US)
  Receive Date: 20130418
  Receipt Date: 20130418
  Transmission Date: 20140414
  Serious: No
  Sender: FDA-Public Use
  Company Number: US-PFIZER INC-2013118935

PATIENT
  Age: 67 Year
  Sex: Male

DRUGS (1)
  1. SUTENT [Suspect]
     Indication: CARCINOID TUMOUR OF THE SMALL BOWEL
     Dosage: 37.5 MG, 1X/DAY (12.5 MG AND 25 MG ONCE EACH DAILY)
     Dates: start: 20121107

REACTIONS (2)
  - Disease progression [Unknown]
  - Carcinoid tumour of the small bowel [Unknown]
